FAERS Safety Report 9705934 (Version 2)
Quarter: 2013Q4

REPORT INFORMATION
  Report Type: Report from Study
  Country: US (occurrence: US)
  Receive Date: 20131122
  Receipt Date: 20131127
  Transmission Date: 20140711
  Serious: Yes (Life-Threatening, Hospitalization)
  Sender: FDA-Public Use
  Company Number: US-ASTRAZENECA-2013SE85953

PATIENT
  Age: 25731 Day
  Sex: Male
  Weight: 105.2 kg

DRUGS (10)
  1. NEXIUM [Suspect]
     Indication: GASTRITIS PROPHYLAXIS
     Route: 048
     Dates: start: 20130615, end: 20131109
  2. CELECOXIB IBUPROFEN NAPROXEN CODE NOT BROKEN [Suspect]
     Indication: OSTEOARTHRITIS
     Dosage: LOW DOSE; THREE TIMES PER DAY
     Route: 048
     Dates: start: 20130615, end: 20131109
  3. CELECOXIB IBUPROFEN NAPROXEN CODE NOT BROKEN [Suspect]
     Indication: RHEUMATOID ARTHRITIS
     Dosage: LOW DOSE; THREE TIMES PER DAY
     Route: 048
     Dates: start: 20130615, end: 20131109
  4. HYDROCODONE W/ACETAMINOPHEN [Concomitant]
     Indication: ARTHRALGIA
     Dates: start: 2011
  5. METFORMIN [Concomitant]
     Indication: TYPE 2 DIABETES MELLITUS
     Dates: start: 2012
  6. FOLIC ACID [Concomitant]
     Indication: MINERAL SUPPLEMENTATION
     Dates: start: 2007
  7. B COMPLEX [Concomitant]
     Indication: VITAMIN SUPPLEMENTATION
     Dates: start: 1963
  8. OMEGA 3 [Concomitant]
     Indication: NUTRITIONAL SUPPLEMENTATION
     Dates: start: 2007
  9. TYLENOL [Concomitant]
     Indication: ARTHRALGIA
     Dates: start: 201212
  10. MULTIVITAMIN [Concomitant]
     Indication: VITAMIN SUPPLEMENTATION
     Dates: start: 1953

REACTIONS (1)
  - Cerebrovascular accident [Unknown]
